FAERS Safety Report 19607346 (Version 2)
Quarter: 2021Q4

REPORT INFORMATION
  Report Type: Report from Study
  Country: CO (occurrence: CO)
  Receive Date: 20210726
  Receipt Date: 20211027
  Transmission Date: 20220304
  Serious: Yes (Death, Hospitalization)
  Sender: FDA-Public Use
  Company Number: CO-AUROBINDO-AUR-APL-2021-022707

PATIENT
  Age: 66 Year
  Sex: Male

DRUGS (1)
  1. FOLOTYN [Suspect]
     Active Substance: PRALATREXATE
     Indication: T-cell lymphoma
     Dosage: 36 MILLIGRAM
     Route: 042
     Dates: start: 20210511, end: 20210706

REACTIONS (3)
  - COVID-19 [Fatal]
  - Abdominal pain [Recovering/Resolving]
  - Feeding disorder [Unknown]

NARRATIVE: CASE EVENT DATE: 20210518
